FAERS Safety Report 8813699 (Version 4)
Quarter: 2016Q2

REPORT INFORMATION
  Report Type: Spontaneous
  Country: US (occurrence: US)
  Receive Date: 20120928
  Receipt Date: 20160414
  Transmission Date: 20160815
  Serious: Yes (Other)
  Sender: FDA-Public Use
  Company Number: US-ASTRAZENECA-2012SE74547

PATIENT
  Age: 56 Year
  Sex: Male
  Weight: 90.7 kg

DRUGS (25)
  1. SINGULAIR [Concomitant]
     Active Substance: MONTELUKAST SODIUM
     Dates: start: 1992
  2. CRESTOR [Suspect]
     Active Substance: ROSUVASTATIN CALCIUM
     Indication: BLOOD CHOLESTEROL INCREASED
     Route: 048
     Dates: start: 2003
  3. CRESTOR [Suspect]
     Active Substance: ROSUVASTATIN CALCIUM
     Indication: BLOOD CHOLESTEROL INCREASED
     Route: 048
     Dates: start: 20091202
  4. JANUMET [Concomitant]
     Active Substance: METFORMIN HYDROCHLORIDE\SITAGLIPTIN PHOSPHATE
     Dates: start: 2003
  5. JANUVIA [Concomitant]
     Active Substance: SITAGLIPTIN PHOSPHATE
     Dates: start: 1992
  6. PREVACID [Concomitant]
     Active Substance: LANSOPRAZOLE
     Indication: HYPERCHLORHYDRIA
     Dates: start: 1992
  7. EFFEXOR [Concomitant]
     Active Substance: VENLAFAXINE HYDROCHLORIDE
     Dates: start: 1992
  8. TRAMADOL. [Concomitant]
     Active Substance: TRAMADOL
     Dates: start: 1992
  9. ALTACE [Concomitant]
     Active Substance: RAMIPRIL
     Dates: start: 20070709
  10. LEVAQUIN [Concomitant]
     Active Substance: LEVOFLOXACIN
     Dates: start: 1992
  11. LIPITOR [Concomitant]
     Active Substance: ATORVASTATIN CALCIUM
     Dates: start: 20080319
  12. GLIMEPIRIDE. [Concomitant]
     Active Substance: GLIMEPIRIDE
     Dates: start: 1992
  13. NYSTATIN. [Concomitant]
     Active Substance: NYSTATIN
     Dates: start: 20050603
  14. PLAVIX [Concomitant]
     Active Substance: CLOPIDOGREL BISULFATE
     Dates: start: 1992
  15. NEXIUM [Concomitant]
     Active Substance: ESOMEPRAZOLE MAGNESIUM
     Indication: HYPERCHLORHYDRIA
     Dates: start: 1992
  16. CLOPIDOGREL [Concomitant]
     Active Substance: CLOPIDOGREL BISULFATE
     Dates: start: 1992
  17. AVANDIA [Concomitant]
     Active Substance: ROSIGLITAZONE MALEATE
     Dates: start: 1992
  18. INSULIN [Concomitant]
     Active Substance: INSULIN NOS
     Dates: start: 1992
  19. LEXAPRO [Concomitant]
     Active Substance: ESCITALOPRAM OXALATE
     Dates: start: 1992
  20. COREG [Concomitant]
     Active Substance: CARVEDILOL
     Dates: start: 20070526
  21. CRESTOR [Suspect]
     Active Substance: ROSUVASTATIN CALCIUM
     Indication: BLOOD CHOLESTEROL INCREASED
     Route: 048
     Dates: start: 20121117
  22. METFORMIN [Concomitant]
     Active Substance: METFORMIN HYDROCHLORIDE
     Dates: start: 1992
  23. XANAX [Concomitant]
     Active Substance: ALPRAZOLAM
     Dates: start: 1992
  24. AVANDAMET [Concomitant]
     Active Substance: METFORMIN HYDROCHLORIDE\ROSIGLITAZONE MALEATE
     Dosage: 4/1000 MG
     Dates: start: 20050304
  25. IBUPROFEN. [Concomitant]
     Active Substance: IBUPROFEN
     Dates: start: 1992

REACTIONS (8)
  - Diabetes mellitus [Not Recovered/Not Resolved]
  - Myocardial infarction [Unknown]
  - Cardiovascular disorder [Unknown]
  - Angina pectoris [Unknown]
  - Arrhythmia [Unknown]
  - Coronary artery disease [Unknown]
  - Hyperchlorhydria [Not Recovered/Not Resolved]
  - Blood triglycerides increased [Not Recovered/Not Resolved]

NARRATIVE: CASE EVENT DATE: 2003
